FAERS Safety Report 19736005 (Version 1)
Quarter: 2021Q3

REPORT INFORMATION
  Report Type: Spontaneous
  Country: BE (occurrence: BE)
  Receive Date: 20210823
  Receipt Date: 20210823
  Transmission Date: 20211014
  Serious: Yes (Disabling)
  Sender: FDA-Public Use
  Company Number: BE-MYLANLABS-2021M1053248

PATIENT
  Age: 31 Year
  Sex: Female
  Weight: 80 kg

DRUGS (2)
  1. OMEPRAZOLE MYLAN 20 MG, MAAGSAPRESISTENTE CAPSULES, HARD [Suspect]
     Active Substance: OMEPRAZOLE
     Indication: DYSPEPSIA
     Dosage: 1 DOSAGE FORM, QD (30 MIN. VOOR HET ONTBIJT)
     Route: 048
     Dates: start: 20210212, end: 20210214
  2. TARDYFERON [Concomitant]
     Active Substance: FERROUS SULFATE
     Dosage: 1 AT LUNCH

REACTIONS (5)
  - Maternal exposure during pregnancy [Unknown]
  - Respiratory disorder [Recovered/Resolved]
  - Dyspnoea [Recovered/Resolved]
  - Nausea [Recovered/Resolved]
  - Vomiting [Recovered/Resolved]

NARRATIVE: CASE EVENT DATE: 20210212
